FAERS Safety Report 17853428 (Version 4)
Quarter: 2020Q3

REPORT INFORMATION
  Report Type: Report from Study
  Country: None (occurrence: ES)
  Receive Date: 20200603
  Receipt Date: 20200824
  Transmission Date: 20201103
  Serious: Yes (Hospitalization, Other)
  Sender: FDA-Public Use
  Company Number: ES-ABBVIE-20K-144-3427212-00

PATIENT
  Age: 74 Year
  Sex: Female
  Weight: 82 kg

DRUGS (2)
  1. DUODOPA [Suspect]
     Active Substance: CARBIDOPA\LEVODOPA
     Indication: PARKINSON^S DISEASE
     Route: 050
     Dates: start: 20190523, end: 2020
  2. DUODOPA [Suspect]
     Active Substance: CARBIDOPA\LEVODOPA
     Dosage: INFUSER DOSES HAD BEEN MODIFIED ON SEVERAL OCCASIONS
     Route: 050
     Dates: start: 2020

REACTIONS (8)
  - Fall [Recovered/Resolved with Sequelae]
  - Procedural pain [Unknown]
  - Bedridden [Recovered/Resolved with Sequelae]
  - Fear [Recovered/Resolved with Sequelae]
  - General physical health deterioration [Recovered/Resolved with Sequelae]
  - Upper limb fracture [Recovered/Resolved]
  - Parkinson^s disease [Recovered/Resolved with Sequelae]
  - Gait disturbance [Unknown]

NARRATIVE: CASE EVENT DATE: 2020
